FAERS Safety Report 10586996 (Version 1)
Quarter: 2014Q4

REPORT INFORMATION
  Report Type: Spontaneous
  Country: BR (occurrence: BR)
  Receive Date: 20141117
  Receipt Date: 20141117
  Transmission Date: 20150529
  Serious: Yes (Other)
  Sender: FDA-Public Use
  Company Number: CHPA2014BR015137

PATIENT
  Sex: Male
  Weight: 150 kg

DRUGS (7)
  1. CORUS//LOSARTAN POTASSIUM [Suspect]
     Active Substance: LOSARTAN POTASSIUM
     Indication: BLOOD PRESSURE
     Dosage: UNK
     Route: 065
  2. PROCTO-GLYVENOL [Suspect]
     Active Substance: LIDOCAINE HYDROCHLORIDE\TRIBENOSIDE
     Indication: CONSTIPATION
     Dosage: 1 DF, PRN
     Route: 054
  3. PROCTO-GLYVENOL [Suspect]
     Active Substance: LIDOCAINE HYDROCHLORIDE\TRIBENOSIDE
     Indication: OFF LABEL USE
  4. ARADOIS [Suspect]
     Active Substance: LOSARTAN POTASSIUM
     Indication: BLOOD PRESSURE
     Dosage: UNK
     Route: 065
  5. DIOVAN [Suspect]
     Active Substance: VALSARTAN
     Indication: BLOOD PRESSURE
     Dosage: UNK
     Route: 048
     Dates: start: 2009, end: 2011
  6. PROCTO-GLYVENOL [Suspect]
     Active Substance: LIDOCAINE HYDROCHLORIDE\TRIBENOSIDE
     Indication: CONSTIPATION
     Dosage: UNK
     Route: 065
  7. PROCTO-GLYVENOL [Suspect]
     Active Substance: LIDOCAINE HYDROCHLORIDE\TRIBENOSIDE
     Indication: OFF LABEL USE

REACTIONS (8)
  - Blood pressure fluctuation [Recovered/Resolved]
  - Faeces hard [Recovered/Resolved]
  - Abdominal discomfort [Recovered/Resolved]
  - Dyspepsia [Recovered/Resolved]
  - Drug ineffective for unapproved indication [Unknown]
  - Constipation [Recovered/Resolved]
  - Therapeutic response unexpected [Unknown]
  - Chest discomfort [Recovered/Resolved]
